FAERS Safety Report 25219438 (Version 2)
Quarter: 2025Q2

REPORT INFORMATION
  Report Type: Spontaneous
  Country: US (occurrence: US)
  Receive Date: 20250421
  Receipt Date: 20250501
  Transmission Date: 20250717
  Serious: Yes (Life-Threatening, Hospitalization)
  Sender: TEVA
  Company Number: US-TEVA-VS-3323628

PATIENT
  Age: 60 Year
  Sex: Male

DRUGS (3)
  1. METHYLPREDNISOLONE [Suspect]
     Active Substance: METHYLPREDNISOLONE
     Indication: Myocarditis
     Route: 065
  2. DURVALUMAB [Suspect]
     Active Substance: DURVALUMAB
     Indication: Adenoid cystic carcinoma
     Route: 065
  3. TREMELIMUMAB [Suspect]
     Active Substance: TREMELIMUMAB
     Indication: Adenoid cystic carcinoma
     Route: 065

REACTIONS (5)
  - Myocarditis [Unknown]
  - Atrioventricular block complete [Unknown]
  - Drug ineffective [Unknown]
  - Cardiac arrest [Unknown]
  - Multiple organ dysfunction syndrome [Unknown]
